FAERS Safety Report 17885077 (Version 1)
Quarter: 2020Q2

REPORT INFORMATION
  Report Type: Spontaneous
  Country: US (occurrence: US)
  Receive Date: 20200611
  Receipt Date: 20200611
  Transmission Date: 20200714
  Serious: Yes (Hospitalization)
  Sender: FDA-Public Use
  Company Number: None

PATIENT
  Age: 49 Year
  Sex: Female

DRUGS (9)
  1. PRAVASTATIN. [Concomitant]
     Active Substance: PRAVASTATIN
  2. DIVALPROEX [Concomitant]
     Active Substance: DIVALPROEX SODIUM
  3. PULMICORT TURBUHALER [Concomitant]
     Active Substance: BUDESONIDE
  4. DIFICID [Suspect]
     Active Substance: FIDAXOMICIN
     Indication: RESPIRATORY DISORDER
     Route: 048
     Dates: start: 20200523
  5. SYMBICORT [Concomitant]
     Active Substance: BUDESONIDE\FORMOTEROL FUMARATE DIHYDRATE
  6. SPIRIVA [Concomitant]
     Active Substance: TIOTROPIUM BROMIDE MONOHYDRATE
  7. MONTELUKAST [Concomitant]
     Active Substance: MONTELUKAST SODIUM
  8. OMEPRAZOLE. [Concomitant]
     Active Substance: OMEPRAZOLE
  9. AIMOVIG [Concomitant]
     Active Substance: ERENUMAB-AOOE

REACTIONS (8)
  - Migraine [None]
  - Fatigue [None]
  - Haemorrhage [None]
  - Diarrhoea [None]
  - Colitis [None]
  - Dizziness [None]
  - Dyspnoea [None]
  - Anal incontinence [None]

NARRATIVE: CASE EVENT DATE: 20200605
